FAERS Safety Report 25853873 (Version 3)
Quarter: 2025Q4

REPORT INFORMATION
  Report Type: Report from Study
  Country: US (occurrence: US)
  Receive Date: 20250926
  Receipt Date: 20251017
  Transmission Date: 20260118
  Serious: Yes (Other)
  Sender: MALLINCKRODT
  Company Number: US-MALLINCKRODT-MNK202505910

PATIENT
  Age: 10 Month
  Sex: Female
  Weight: 7 kg

DRUGS (1)
  1. CORTICOTROPIN [Suspect]
     Active Substance: CORTICOTROPIN
     Indication: Infantile spasms
     Route: 030
     Dates: start: 20250908, end: 20251006

REACTIONS (7)
  - Seizure cluster [Recovering/Resolving]
  - Sleep disorder [Recovering/Resolving]
  - Dry mouth [Unknown]
  - Teething [Unknown]
  - Irritability [Recovering/Resolving]
  - Increased appetite [Unknown]
  - Body temperature increased [Recovering/Resolving]

NARRATIVE: CASE EVENT DATE: 20250101
